FAERS Safety Report 5187881-1 (Version None)
Quarter: 2006Q4

REPORT INFORMATION
  Report Type: 
  Country: None (occurrence: None)
  Receive Date: 20061221
  Receipt Date: 20061121
  Transmission Date: 20070319
  Serious: No
  Sender: FDA-Public Use
  Company Number: US-GLAXOSMITHKLINE-A0628305A

PATIENT
  Sex: Male

DRUGS (3)
  1. AVANDARYL [Suspect]
     Route: 048
     Dates: start: 20060919
  2. HYDROCHLOROTHIAZIDE [Concomitant]
  3. METOPROLOL SUCCINATE [Concomitant]

REACTIONS (1)
  - WEIGHT DECREASED [None]
